FAERS Safety Report 5511706-5 (Version None)
Quarter: 2007Q4

REPORT INFORMATION
  Report Type: 
  Country: None (occurrence: None)
  Receive Date: 20071109
  Receipt Date: 20071101
  Transmission Date: 20080405
  Serious: Yes (Death, Other)
  Sender: FDA-Public Use
  Company Number: GB-PFIZER INC-2007047402

PATIENT
  Sex: Male
  Weight: 84 kg

DRUGS (8)
  1. LIPITOR [Suspect]
     Indication: HYPERLIPIDAEMIA
     Route: 048
  2. LIPITOR [Suspect]
     Indication: HYPERCHOLESTEROLAEMIA
  3. FENOFIBRATE (MICRONIZED) [Concomitant]
     Route: 048
  4. TRANDOLAPRIL [Concomitant]
     Route: 048
  5. BENDROFLUMETHIAZIDE [Concomitant]
     Route: 048
  6. FELODIPINE [Concomitant]
     Route: 048
  7. DOXAZOSIN MESYLATE [Concomitant]
     Route: 048
  8. ZOPICLONE [Concomitant]
     Route: 048

REACTIONS (8)
  - BLOOD CHOLESTEROL ABNORMAL [None]
  - BLOOD CREATINE PHOSPHOKINASE INCREASED [None]
  - BLOOD TRIGLYCERIDES ABNORMAL [None]
  - CHOLELITHIASIS [None]
  - HYPERTENSION [None]
  - ORGAN FAILURE [None]
  - PANCREATITIS ACUTE [None]
  - TOTAL CHOLESTEROL/HDL RATIO ABNORMAL [None]
